FAERS Safety Report 12892677 (Version 1)
Quarter: 2016Q4

REPORT INFORMATION
  Report Type: Report from Study
  Country: None (occurrence: IL)
  Receive Date: 20161028
  Receipt Date: 20161028
  Transmission Date: 20170207
  Serious: Yes (Hospitalization)
  Sender: FDA-Public Use
  Company Number: IL-BIOVITRUM-2009IL0004

PATIENT
  Age: 2 Year
  Sex: Male
  Weight: 13.5 kg

DRUGS (2)
  1. ORFADIN [Suspect]
     Active Substance: NITISINONE
     Indication: TYROSINAEMIA
     Route: 048
     Dates: start: 200510
  2. AUGMENTIN [Concomitant]
     Active Substance: AMOXICILLIN\CLAVULANATE POTASSIUM
     Indication: PNEUMONIA
     Dates: start: 20080712, end: 20080723

REACTIONS (7)
  - Dehydration [Recovered/Resolved]
  - Azotaemia [Recovered/Resolved]
  - Abdominal pain [Recovered/Resolved]
  - Porphyria acute [Unknown]
  - Hypertension [Unknown]
  - Decreased appetite [Recovered/Resolved]
  - Pneumonia [Recovered/Resolved]

NARRATIVE: CASE EVENT DATE: 20080712
